FAERS Safety Report 10083464 (Version 3)
Quarter: 2014Q4

REPORT INFORMATION
  Report Type: Spontaneous
  Country: NO (occurrence: NO)
  Receive Date: 20140417
  Receipt Date: 20141010
  Transmission Date: 20150528
  Serious: Yes (Death, Life-Threatening, Disabling)
  Sender: FDA-Public Use
  Company Number: NO-ASTRAZENECA-2014SE25960

PATIENT
  Age: 40 Year
  Sex: Female
  Weight: 71 kg

DRUGS (2)
  1. SEROQUEL [Suspect]
     Active Substance: QUETIAPINE FUMARATE
     Indication: BIPOLAR DISORDER
     Route: 048
     Dates: start: 20111126, end: 20111203
  2. LITHIUM [Concomitant]
     Active Substance: LITHIUM CARBONATE
     Indication: BIPOLAR DISORDER
     Route: 048
     Dates: end: 20111203

REACTIONS (8)
  - Cardiac arrest [Fatal]
  - Haemorrhagic vasculitis [Fatal]
  - Discomfort [Unknown]
  - Confusional state [Unknown]
  - Haematuria [Fatal]
  - Abdominal pain lower [Fatal]
  - Allergic myocarditis [Fatal]
  - General physical health deterioration [Unknown]

NARRATIVE: CASE EVENT DATE: 2011
